FAERS Safety Report 4503296-0 (Version None)
Quarter: 2004Q4

REPORT INFORMATION
  Report Type: 
  Country: None (occurrence: None)
  Receive Date: 20041112
  Receipt Date: 20041029
  Transmission Date: 20050328
  Serious: Yes (Other)
  Sender: FDA-Public Use
  Company Number: 2004S1000242

PATIENT
  Age: 28 Year
  Sex: Female

DRUGS (8)
  1. ACITRETIN (ACITRETIN) (25 MG) [Suspect]
     Indication: PSORIASIS
     Dosage: 25 MG; QD; PO
     Route: 048
     Dates: start: 20030523
  2. ACITRETIN (ACITRETIN) (10 MG) [Suspect]
     Indication: PSORIASIS
     Dosage: 10 MG; QD; PO
     Route: 048
     Dates: end: 20040607
  3. NOCTRAN [Concomitant]
  4. TEMESTA [Concomitant]
  5. ATARAX [Concomitant]
  6. TERCIAN [Concomitant]
  7. MINIDRIL [Concomitant]
  8. TRICILEST [Concomitant]

REACTIONS (1)
  - PREGNANCY [None]
